FAERS Safety Report 8828106 (Version 1)
Quarter: 2012Q4

REPORT INFORMATION
  Report Type: 
  Country: DK (occurrence: DK)
  Receive Date: 20121008
  Receipt Date: 20121008
  Transmission Date: 20130627
  Serious: Yes (Death)
  Sender: FDA-Public Use
  Company Number: PHHY2012DK086148

PATIENT
  Age: 66 Year
  Sex: Female

DRUGS (1)
  1. IMATINIB [Suspect]
     Indication: GASTROINTESTINAL STROMAL TUMOUR
     Dosage: UNK UKN, UNK

REACTIONS (1)
  - Pneumocystis jiroveci infection [Fatal]
